FAERS Safety Report 4636597-6 (Version None)
Quarter: 2005Q2

REPORT INFORMATION
  Report Type: 
  Country: None (occurrence: None)
  Receive Date: 20050414
  Receipt Date: 20050309
  Transmission Date: 20051028
  Serious: Yes (Death)
  Sender: FDA-Public Use
  Company Number: 2005-UK-00405UK

PATIENT
  Age: 74 Year
  Sex: Male

DRUGS (12)
  1. SPIRIVA [Suspect]
     Dosage: 18 MCG (18 MCG, OD) IH
     Route: 055
  2. SALBUTAMOL (SALBUTAMOL) (NR) [Concomitant]
  3. AMITRIPTYLINE HYDROCHLORIDE [Concomitant]
  4. VERAPAMIL HYDROCHLORIDE (VERAPAMIL HYDROCHLORIDE) (TA) [Concomitant]
  5. SUMATRIPTAN SUCCINATE (SUMATRIPTAN SUCCINATE) (AEN) [Concomitant]
  6. PREDNISOLONE (PREDNISOLONE) (TA) [Concomitant]
  7. CLARITHROMYCIN (CLARITHROMYCIN) (TA) [Concomitant]
  8. SERETIDE (SERETIDE MITE) (NR) [Concomitant]
  9. MENTHOL AND EUCALYPTUS (NR) [Concomitant]
  10. PARACETAMOL (PARACETAMOL) (TA) [Concomitant]
  11. OXYGEN (OXYGEN) (NR) [Concomitant]
  12. SUMATRIPTAN SUCCINATE (SUMATRIPTAN SUCCINATE) (TA) [Concomitant]

REACTIONS (2)
  - CHRONIC OBSTRUCTIVE PULMONARY DISEASE [None]
  - LOWER RESPIRATORY TRACT INFECTION [None]
